FAERS Safety Report 13637580 (Version 1)
Quarter: 2017Q2

REPORT INFORMATION
  Report Type: Spontaneous
  Country: US (occurrence: US)
  Receive Date: 20170608
  Receipt Date: 20170608
  Transmission Date: 20170830
  Serious: No
  Sender: FDA-Public Use
  Company Number: None

PATIENT
  Age: 58 Year
  Sex: Female
  Weight: 77.11 kg

DRUGS (8)
  1. ESTRING [Suspect]
     Active Substance: ESTRADIOL
  2. LISINOPRIL. [Concomitant]
     Active Substance: LISINOPRIL
  3. NEUROTIN [Concomitant]
     Active Substance: GABAPENTIN
  4. CYMBALTO [Concomitant]
  5. VICTOZA [Concomitant]
     Active Substance: LIRAGLUTIDE
  6. LIPITOR [Concomitant]
     Active Substance: ATORVASTATIN CALCIUM
  7. ASPIRIN. [Concomitant]
     Active Substance: ASPIRIN
  8. METFORMIN [Concomitant]
     Active Substance: METFORMIN HYDROCHLORIDE

REACTIONS (1)
  - Urinary incontinence [None]

NARRATIVE: CASE EVENT DATE: 20170301
